FAERS Safety Report 26129255 (Version 1)
Quarter: 2025Q4

REPORT INFORMATION
  Report Type: Spontaneous
  Country: EU (occurrence: EU)
  Receive Date: 20251208
  Receipt Date: 20251208
  Transmission Date: 20260117
  Serious: Yes (Other)
  Sender: SUNOVION
  Company Number: GB-SMPA-2025SPA016298

PATIENT
  Age: 16 Year
  Sex: Male

DRUGS (1)
  1. LURASIDONE HYDROCHLORIDE [Suspect]
     Active Substance: LURASIDONE HYDROCHLORIDE
     Indication: Schizoaffective disorder bipolar type
     Dosage: UNK

REACTIONS (2)
  - Hallucination, auditory [Unknown]
  - Extrapyramidal disorder [Unknown]
